FAERS Safety Report 5366759-4 (Version None)
Quarter: 2007Q2

REPORT INFORMATION
  Report Type: 
  Country: None (occurrence: None)
  Receive Date: 20070622
  Receipt Date: 20060621
  Transmission Date: 20071010
  Serious: No
  Sender: FDA-Public Use
  Company Number: US-ASTRAZENECA-2006UW13164

PATIENT
  Age: 63 Year
  Sex: Male
  Weight: 86.2 kg

DRUGS (4)
  1. RHINOCORT [Suspect]
     Indication: HYPERSENSITIVITY
     Dosage: ONE SPRAY PER NOSTRIL
     Route: 045
  2. BENICAR [Concomitant]
  3. CRESTOR [Concomitant]
     Route: 048
  4. ASPIRIN [Concomitant]

REACTIONS (1)
  - HEART RATE DECREASED [None]
